FAERS Safety Report 11495413 (Version 1)
Quarter: 2015Q3

REPORT INFORMATION
  Report Type: Spontaneous
  Country: US (occurrence: US)
  Receive Date: 20150911
  Receipt Date: 20150911
  Transmission Date: 20151125
  Serious: Yes (Hospitalization)
  Sender: FDA-Public Use
  Company Number: US-ROCHE-1011966

PATIENT
  Sex: Male

DRUGS (6)
  1. RIBAVIRIN. [Suspect]
     Active Substance: RIBAVIRIN
     Route: 065
     Dates: start: 20111109
  2. RIBAVIRIN. [Suspect]
     Active Substance: RIBAVIRIN
     Route: 065
  3. PEGASYS [Suspect]
     Active Substance: PEGINTERFERON ALFA-2A
     Indication: CHRONIC HEPATITIS C
     Dosage: PFS
     Route: 058
     Dates: start: 20110810
  4. TELAPREVIR [Suspect]
     Active Substance: TELAPREVIR
     Indication: CHRONIC HEPATITIS C
     Dosage: 12 WEEKS THERAPY
     Route: 065
     Dates: start: 20110810, end: 20111026
  5. RIBAVIRIN. [Suspect]
     Active Substance: RIBAVIRIN
     Indication: CHRONIC HEPATITIS C
     Dosage: DAILY IN DIVIDED DOSE
     Route: 048
     Dates: start: 20110810
  6. PROCRIT [Concomitant]
     Active Substance: ERYTHROPOIETIN

REACTIONS (8)
  - Rash [Recovered/Resolved]
  - Vertigo [Unknown]
  - Anxiety [Unknown]
  - Decreased appetite [Unknown]
  - Localised infection [Unknown]
  - Anaemia [Unknown]
  - Fatigue [Unknown]
  - Nausea [Recovered/Resolved]
